FAERS Safety Report 20335458 (Version 1)
Quarter: 2022Q1

REPORT INFORMATION
  Report Type: Spontaneous
  Country: JP (occurrence: JP)
  Receive Date: 20220114
  Receipt Date: 20220114
  Transmission Date: 20220423
  Serious: Yes (Hospitalization, Other)
  Sender: FDA-Public Use
  Company Number: JP-LUPIN PHARMACEUTICALS INC.-2022-00115

PATIENT
  Age: 6 Decade
  Sex: Male
  Weight: 78 kg

DRUGS (11)
  1. VANCOMYCIN [Suspect]
     Active Substance: VANCOMYCIN
     Indication: Staphylococcal infection
     Dosage: 1000 MILLIGRAM, BID (ON DAY 43)
     Route: 065
  2. VANCOMYCIN [Suspect]
     Active Substance: VANCOMYCIN
     Dosage: 1250 MILLIGRAM, BID (ON DAY 49)
     Route: 065
  3. LINEZOLID [Suspect]
     Active Substance: LINEZOLID
     Indication: Staphylococcal sepsis
     Dosage: 600 MILLIGRAM, BID
     Route: 042
  4. LINEZOLID [Suspect]
     Active Substance: LINEZOLID
     Dosage: 600 MILLIGRAM, BID (SWITCHED BACK ON DAY 27)
     Route: 042
  5. LINEZOLID [Suspect]
     Active Substance: LINEZOLID
     Dosage: 600 MILLIGRAM, BID (SWITCHED BACK ON DAY 85)
     Route: 042
  6. LINEZOLID [Suspect]
     Active Substance: LINEZOLID
     Dosage: 600 MILLIGRAM, QD (CHANGED BACK TO LINEZOLID WITH REDUCED DOSE FROM DAY 138 ONWARDS)
     Route: 042
  7. LINEZOLID [Suspect]
     Active Substance: LINEZOLID
     Dosage: 400 MILLIGRAM, QD
     Route: 042
  8. LINEZOLID [Suspect]
     Active Substance: LINEZOLID
     Dosage: 300 MILLIGRAM, QD (INTRAVENOUS LINEZOLID WAS SWITCHED TO ORAL MEDICATION ON DAY 180)
     Route: 048
  9. LINEZOLID [Suspect]
     Active Substance: LINEZOLID
     Dosage: 300 MILLIGRAM, QD (DOSE REDUCED TO ON DAY 184)
     Route: 048
  10. DAPTOMYCIN [Suspect]
     Active Substance: DAPTOMYCIN
     Indication: Staphylococcal abscess
     Dosage: 6 MILLIGRAM/KILOGRAM (ON DAY 16)
     Route: 065
  11. TEDIZOLID [Suspect]
     Active Substance: TEDIZOLID
     Indication: Staphylococcal abscess
     Dosage: 200 MILLIGRAM, QD
     Route: 065

REACTIONS (2)
  - Thrombocytopenia [Recovering/Resolving]
  - Therapy non-responder [Unknown]
